FAERS Safety Report 14165263 (Version 1)
Quarter: 2017Q4

REPORT INFORMATION
  Report Type: Spontaneous
  Country: US (occurrence: US)
  Receive Date: 20171106
  Receipt Date: 20171106
  Transmission Date: 20180321
  Serious: No
  Sender: FDA-Public Use
  Company Number: None

PATIENT
  Age: 27 Day
  Sex: Female
  Weight: 222 kg

DRUGS (4)
  1. INVEGA [Suspect]
     Active Substance: PALIPERIDONE
     Indication: SCHIZOAFFECTIVE DISORDER
     Dosage: STRENGHT: LOW G GRAMS?          QUANTITY:1 CAPSULE(S);?
     Route: 048
  2. IBUPROFEN. [Concomitant]
     Active Substance: IBUPROFEN
  3. MULTI VITAMIN [Concomitant]
     Active Substance: VITAMINS
  4. SCIATIC HERBAL [Concomitant]

REACTIONS (7)
  - Bone pain [None]
  - Crying [None]
  - Feelings of worthlessness [None]
  - Disorientation [None]
  - Imprisonment [None]
  - Depression [None]
  - Myalgia [None]

NARRATIVE: CASE EVENT DATE: 20170911
